FAERS Safety Report 17154805 (Version 6)
Quarter: 2025Q2

REPORT INFORMATION
  Report Type: Report from Study
  Country: US (occurrence: US)
  Receive Date: 20191214
  Receipt Date: 20250527
  Transmission Date: 20250716
  Serious: Yes (Other)
  Sender: TAKEDA
  Company Number: US-TAKEDA-2019TUS070484

PATIENT
  Age: 72 Year
  Sex: Female
  Weight: 64 kg

DRUGS (4)
  1. PONATINIB [Suspect]
     Active Substance: PONATINIB
     Indication: Acute lymphocytic leukaemia
     Dosage: 30 MILLIGRAM, QD
     Dates: start: 20180927
  2. PONATINIB [Suspect]
     Active Substance: PONATINIB
     Dosage: 30 MILLIGRAM, QD
  3. PONATINIB [Suspect]
     Active Substance: PONATINIB
     Dosage: 15 MILLIGRAM, QD
  4. PONATINIB [Suspect]
     Active Substance: PONATINIB
     Dosage: 15 MILLIGRAM, QD
     Dates: start: 20230215

REACTIONS (8)
  - Arthropathy [Unknown]
  - Leukaemia [Unknown]
  - Product dose omission issue [Unknown]
  - Blood pressure abnormal [Recovered/Resolved]
  - Alopecia [Unknown]
  - Anaemia [Unknown]
  - Device issue [Unknown]
  - Drug ineffective [Unknown]

NARRATIVE: CASE EVENT DATE: 20220123
